FAERS Safety Report 20427065 (Version 1)
Quarter: 2022Q1

REPORT INFORMATION
  Report Type: Spontaneous
  Country: GB (occurrence: GB)
  Receive Date: 20220204
  Receipt Date: 20220204
  Transmission Date: 20220424
  Serious: Yes (Other)
  Sender: FDA-Public Use
  Company Number: None

PATIENT
  Age: 59 Year
  Sex: Male
  Weight: 110 kg

DRUGS (9)
  1. VICTOZA [Suspect]
     Active Substance: LIRAGLUTIDE
     Indication: Ill-defined disorder
     Dosage: 6 MG
     Route: 065
     Dates: start: 20210303
  2. BUDESONIDE [Concomitant]
     Active Substance: BUDESONIDE
     Indication: Ill-defined disorder
     Dosage: 1 TAB BID INHALE 1 DOSE TWICE DAILY
     Route: 055
     Dates: start: 20200925
  3. FERROUS FUMARATE [Concomitant]
     Active Substance: FERROUS FUMARATE
     Indication: Ill-defined disorder
     Dosage: 1 TAB QD TAKE ONE DAILY
     Route: 065
     Dates: start: 20200925
  4. GLICLAZIDE [Concomitant]
     Active Substance: GLICLAZIDE
     Indication: Ill-defined disorder
     Dosage: 1 TAB BID TAKE ONE TWICE A DAY (NOT A LONG TERM TREATMENT)
     Route: 065
     Dates: start: 20220120
  5. METFORMIN [Concomitant]
     Active Substance: METFORMIN HYDROCHLORIDE
     Indication: Ill-defined disorder
     Dosage: TAKE 2 TABLETS IN THE MORNING AND 2 TABLETS WIT...
     Route: 065
     Dates: start: 20210923
  6. OMEPRAZOLE [Concomitant]
     Active Substance: OMEPRAZOLE
     Indication: Ill-defined disorder
     Dosage: 1 TAB QD TAKE ONE DAILY
     Route: 065
     Dates: start: 20210923
  7. OZEMPIC [Concomitant]
     Active Substance: SEMAGLUTIDE
     Indication: Ill-defined disorder
     Dosage: 0. 2 MG QW ONCE A WEEK SUBCUTANEOUS INJECTION
     Route: 065
     Dates: start: 20220120, end: 20220121
  8. RAMIPRIL [Concomitant]
     Active Substance: RAMIPRIL
     Indication: Ill-defined disorder
     Dosage: 1 TAB QD TAKE ONE DAILY
     Route: 065
     Dates: start: 20210226
  9. VENTOLIN [Concomitant]
     Active Substance: ALBUTEROL SULFATE
     Indication: Ill-defined disorder
     Dosage: INHALE 2 DOSES AS NEEDED
     Route: 065
     Dates: start: 20200925

REACTIONS (1)
  - Joint stiffness [Recovered/Resolved]

NARRATIVE: CASE EVENT DATE: 20220124
